FAERS Safety Report 9638973 (Version 2)
Quarter: 2015Q1

REPORT INFORMATION
  Report Type: Report from Study
  Country: KR (occurrence: KR)
  Receive Date: 20131022
  Receipt Date: 20150213
  Transmission Date: 20150721
  Serious: Yes (Death, Hospitalization)
  Sender: FDA-Public Use
  Company Number: KR-BAYER-2013-124439

PATIENT
  Age: 61 Year
  Sex: Female

DRUGS (2)
  1. BARACLUDE [Concomitant]
     Active Substance: ENTECAVIR
     Indication: HEPATOCELLULAR CARCINOMA
     Dosage: 0.5 MG, QD
     Route: 048
     Dates: start: 20120410, end: 20120423
  2. NEXAVAR [Suspect]
     Active Substance: SORAFENIB
     Indication: HEPATOCELLULAR CARCINOMA
     Dosage: DAILY DOSE 800 MG
     Route: 048
     Dates: start: 20120410, end: 20120423

REACTIONS (2)
  - Acute kidney injury [Fatal]
  - Rash [Unknown]

NARRATIVE: CASE EVENT DATE: 20120412
